FAERS Safety Report 5888711-2 (Version None)
Quarter: 2008Q3

REPORT INFORMATION
  Report Type: 
  Country: None (occurrence: None)
  Receive Date: 20080917
  Receipt Date: 20080901
  Transmission Date: 20090109
  Serious: Yes (Hospitalization)
  Sender: FDA-Public Use
  Company Number: DSA_32395_2008

PATIENT
  Age: 76 Year
  Sex: Male

DRUGS (3)
  1. RENIVACE (RENIVACE - ENALAPRIL MALEATE) NOT SPECIFIED [Suspect]
     Indication: HYPERTENSION
     Dosage: 5 MG BID ORAL
     Route: 048
     Dates: start: 20080101, end: 20080830
  2. ADALAT [Concomitant]
  3. GASTER /00706001/ [Concomitant]

REACTIONS (5)
  - ANEURYSM [None]
  - ANOREXIA [None]
  - BLOOD SODIUM DECREASED [None]
  - INAPPROPRIATE ANTIDIURETIC HORMONE SECRETION [None]
  - MALAISE [None]
